FAERS Safety Report 7751605-1 (Version None)
Quarter: 2011Q3

REPORT INFORMATION
  Report Type: 
  Country: None (occurrence: None)
  Receive Date: 20110914
  Receipt Date: 20110912
  Transmission Date: 20111222
  Serious: Yes (Hospitalization, Other)
  Sender: FDA-Public Use
  Company Number: PHEH2009US14085

PATIENT
  Sex: Male
  Weight: 150 kg

DRUGS (1)
  1. EXJADE [Suspect]
     Indication: IRON METABOLISM DISORDER
     Dosage: 1000 MG, ONCE WEEKLY
     Route: 048
     Dates: start: 20090728

REACTIONS (1)
  - SICKLE CELL ANAEMIA WITH CRISIS [None]
